FAERS Safety Report 6635738-9 (Version None)
Quarter: 2010Q1

REPORT INFORMATION
  Report Type: 
  Country: None (occurrence: None)
  Receive Date: 20100309
  Receipt Date: 20100226
  Transmission Date: 20100710
  Serious: Yes (Hospitalization)
  Sender: FDA-Public Use
  Company Number: WAES0901USA02930

PATIENT
  Age: 67 Year
  Sex: Male

DRUGS (2)
  1. HYZAAR [Suspect]
     Indication: HYPERTENSION
     Dosage: 1 TAB/DAILY, PO
     Route: 048
     Dates: start: 20070727, end: 20081022
  2. CONIEL [Concomitant]

REACTIONS (1)
  - POLYMYALGIA RHEUMATICA [None]
